FAERS Safety Report 12866097 (Version 1)
Quarter: 2016Q4

REPORT INFORMATION
  Report Type: Spontaneous
  Country: US (occurrence: US)
  Receive Date: 20161020
  Receipt Date: 20161020
  Transmission Date: 20170207
  Serious: Yes (Hospitalization)
  Sender: FDA-Public Use
  Company Number: US-MYLANLABS-2016M1031704

PATIENT
  Sex: Female

DRUGS (1)
  1. PINDOLOL. [Suspect]
     Active Substance: PINDOLOL
     Dosage: UNK

REACTIONS (2)
  - Dyspnoea [Recovering/Resolving]
  - Nausea [Recovering/Resolving]
